FAERS Safety Report 8438897-0 (Version None)
Quarter: 2012Q2

REPORT INFORMATION
  Report Type: 
  Country: None (occurrence: None)
  Receive Date: 20120615
  Receipt Date: 20120607
  Transmission Date: 20120825
  Serious: Yes (Other)
  Sender: FDA-Public Use
  Company Number: FR-JNJFOC-20120412788

PATIENT
  Sex: Male

DRUGS (2)
  1. RIFAMPIN AND ISONIAZID [Suspect]
     Indication: LATENT TUBERCULOSIS
     Route: 065
  2. STELARA [Suspect]
     Indication: PSORIASIS
     Route: 058

REACTIONS (1)
  - HEPATITIS [None]
